FAERS Safety Report 13586356 (Version 3)
Quarter: 2017Q3

REPORT INFORMATION
  Report Type: Spontaneous
  Country: US (occurrence: US)
  Receive Date: 20170526
  Receipt Date: 20170711
  Transmission Date: 20171127
  Serious: Yes (Hospitalization, Other)
  Sender: FDA-Public Use
  Company Number: US-SA-2016SA215314

PATIENT
  Age: 52 Year
  Sex: Female

DRUGS (3)
  1. AUBAGIO [Suspect]
     Active Substance: TERIFLUNOMIDE
     Indication: MULTIPLE SCLEROSIS
     Route: 048
     Dates: start: 20141031
  2. AUBAGIO [Suspect]
     Active Substance: TERIFLUNOMIDE
     Indication: MULTIPLE SCLEROSIS
     Route: 048
     Dates: start: 20141031
  3. AUBAGIO [Suspect]
     Active Substance: TERIFLUNOMIDE
     Indication: MULTIPLE SCLEROSIS
     Route: 048
     Dates: start: 20141031

REACTIONS (9)
  - Memory impairment [Unknown]
  - Haemoglobin decreased [Unknown]
  - Fall [Unknown]
  - Mobility decreased [Unknown]
  - Blood test abnormal [Unknown]
  - Product use issue [Unknown]
  - Malaise [Unknown]
  - Muscular weakness [Unknown]
  - Pneumonia [Unknown]

NARRATIVE: CASE EVENT DATE: 201611
